FAERS Safety Report 6871015-9 (Version None)
Quarter: 2010Q3

REPORT INFORMATION
  Report Type: 
  Country: None (occurrence: None)
  Receive Date: 20100721
  Receipt Date: 20100708
  Transmission Date: 20110219
  Serious: Yes (Disabling)
  Sender: FDA-Public Use
  Company Number: DK-1182628

PATIENT
  Age: 65 Year
  Sex: Male

DRUGS (1)
  1. CIPRO HC [Suspect]
     Indication: EAR INFECTION
     Dosage: 3 GTT BID, OPHTHALMIC
     Route: 047
     Dates: start: 20100512, end: 20100518

REACTIONS (4)
  - DEAFNESS [None]
  - EAR PAIN [None]
  - HEADACHE [None]
  - HYPOACUSIS [None]
